FAERS Safety Report 14567176 (Version 3)
Quarter: 2018Q2

REPORT INFORMATION
  Report Type: Spontaneous
  Country: US (occurrence: US)
  Receive Date: 20180223
  Receipt Date: 20180629
  Transmission Date: 20180711
  Serious: No
  Sender: FDA-Public Use
  Company Number: US-PFIZER INC-2018078720

PATIENT
  Age: 64 Year
  Sex: Female
  Weight: 97.52 kg

DRUGS (1)
  1. IBRANCE [Suspect]
     Active Substance: PALBOCICLIB
     Indication: BREAST CANCER METASTATIC
     Dosage: 125 MG, CYCLIC [1 CAPSULE EVERY DAY ON DAYS 1-21 (28 DAY CYCLE)]
     Route: 048
     Dates: start: 201711

REACTIONS (5)
  - Ear infection [Unknown]
  - Decreased appetite [Unknown]
  - Constipation [Unknown]
  - Drug dose omission [Unknown]
  - Dizziness [Unknown]
